FAERS Safety Report 4811067-0 (Version None)
Quarter: 2005Q4

REPORT INFORMATION
  Report Type: 
  Country: None (occurrence: None)
  Receive Date: 20051025
  Receipt Date: 20051010
  Transmission Date: 20060501
  Serious: Yes (Death)
  Sender: FDA-Public Use
  Company Number: COT_0226_2005

PATIENT
  Age: 53 Year
  Sex: Male
  Weight: 107.9561 kg

DRUGS (16)
  1. VENTAVIS [Suspect]
     Indication: IDIOPATHIC PULMONARY FIBROSIS
     Dosage: 5 MCG 6XD IH
     Route: 055
     Dates: start: 20051001, end: 20051006
  2. ZOLOFT [Concomitant]
  3. LASIX [Concomitant]
  4. PLAVIX [Concomitant]
  5. FOLTX [Concomitant]
  6. MULTI-VITAMIN [Concomitant]
  7. LIPITOR [Concomitant]
  8. LISINOPRIL [Concomitant]
  9. NEXIUM [Concomitant]
  10. SONATA [Concomitant]
  11. MIRAPEX [Concomitant]
  12. GAMMA INTERFERON [Concomitant]
  13. INSULIN [Concomitant]
  14. ISOSORBIDE [Concomitant]
  15. XENICAL [Concomitant]
  16. TOPROL-XL [Concomitant]

REACTIONS (2)
  - ARRHYTHMIA [None]
  - MYOCARDIAL INFARCTION [None]
